FAERS Safety Report 14152553 (Version 2)
Quarter: 2017Q4

REPORT INFORMATION
  Report Type: Report from Study
  Country: BR (occurrence: BR)
  Receive Date: 20171102
  Receipt Date: 20171226
  Transmission Date: 20180321
  Serious: Yes (Other)
  Sender: FDA-Public Use
  Company Number: PHHY2017BR052100

PATIENT
  Age: 63 Year
  Sex: Female
  Weight: 79 kg

DRUGS (8)
  1. OMEPRAZOLE. [Suspect]
     Active Substance: OMEPRAZOLE
     Indication: HIATUS HERNIA
     Dosage: UNK
     Route: 065
  2. ULTIBRO BREEZHALER [Suspect]
     Active Substance: GLYCOPYRRONIUM\INDACATEROL
     Indication: EMPHYSEMA
     Dosage: 1 DF (GLYCORPYRRONIUM BROMIDE 50UG/ INDACATEROL 110 UG), QD
     Route: 055
  3. ULTIBRO BREEZHALER [Suspect]
     Active Substance: GLYCOPYRRONIUM\INDACATEROL
     Indication: BRONCHITIS
     Dosage: 1 DF (GLYCORPYRRONIUM BROMIDE 50UG/ INDACATEROL 110 UG), QD
     Route: 055
     Dates: start: 201703
  4. VITAMIN D [Concomitant]
     Active Substance: CHOLECALCIFEROL
     Indication: PRODUCT USED FOR UNKNOWN INDICATION
     Route: 065
  5. ULTIBRO BREEZHALER [Suspect]
     Active Substance: GLYCOPYRRONIUM\INDACATEROL
     Indication: CHRONIC OBSTRUCTIVE PULMONARY DISEASE
     Dosage: 1 DF (GLYCORPYRRONIUM BROMIDE 50UG/ INDACATEROL 110 UG), QD
     Route: 055
  6. ULTIBRO BREEZHALER [Suspect]
     Active Substance: GLYCOPYRRONIUM\INDACATEROL
     Dosage: 1 DF, QD
     Route: 055
  7. DOMPERIDONE [Concomitant]
     Active Substance: DOMPERIDONE
     Indication: HIATUS HERNIA
     Dosage: 30 MINUTES BEFORE EATING
     Route: 065
  8. ULTIBRO BREEZHALER [Suspect]
     Active Substance: GLYCOPYRRONIUM\INDACATEROL
     Dosage: 1 DF, QD
     Route: 055

REACTIONS (26)
  - Productive cough [Recovering/Resolving]
  - Aphthous ulcer [Not Recovered/Not Resolved]
  - Memory impairment [Unknown]
  - Dysphonia [Unknown]
  - Sneezing [Recovering/Resolving]
  - Fear [Unknown]
  - Swelling [Unknown]
  - Joint swelling [Unknown]
  - Depressed mood [Not Recovered/Not Resolved]
  - Product use in unapproved indication [Unknown]
  - Drug ineffective [Unknown]
  - Fatigue [Not Recovered/Not Resolved]
  - Fall [Unknown]
  - Upper limb fracture [Not Recovered/Not Resolved]
  - Ligament sprain [Unknown]
  - Impaired healing [Unknown]
  - Dry throat [Recovered/Resolved]
  - Erythema [Unknown]
  - Humerus fracture [Not Recovered/Not Resolved]
  - Panic attack [Unknown]
  - Influenza like illness [Unknown]
  - Flatulence [Unknown]
  - Nausea [Not Recovered/Not Resolved]
  - Headache [Unknown]
  - Malaise [Unknown]
  - Gastrooesophageal reflux disease [Unknown]

NARRATIVE: CASE EVENT DATE: 20170728
